FAERS Safety Report 7000690-3 (Version None)
Quarter: 2010Q3

REPORT INFORMATION
  Report Type: 
  Country: None (occurrence: None)
  Receive Date: 20100920
  Receipt Date: 20100204
  Transmission Date: 20110219
  Serious: No
  Sender: FDA-Public Use
  Company Number: US-ASTRAZENECA-2009SE28556

PATIENT
  Age: 16118 Day
  Sex: Male
  Weight: 117.9 kg

DRUGS (7)
  1. SEROQUEL [Suspect]
     Indication: SCHIZOPHRENIA, PARANOID TYPE
     Route: 048
     Dates: start: 20010101, end: 20040101
  2. SEROQUEL [Suspect]
     Indication: DEPRESSION
     Route: 048
     Dates: start: 20010101, end: 20040101
  3. ABILIFY [Concomitant]
     Dates: start: 20010101, end: 20040101
  4. RISPERDAL [Concomitant]
     Dates: start: 20020101
  5. ZYPREXA [Concomitant]
     Dates: start: 20040101
  6. ZOLOFT [Concomitant]
  7. PAXIL CR [Concomitant]

REACTIONS (3)
  - CHEST PAIN [None]
  - OBESITY [None]
  - TYPE 2 DIABETES MELLITUS [None]
